FAERS Safety Report 11163501 (Version 5)
Quarter: 2020Q2

REPORT INFORMATION
  Report Type: Spontaneous
  Country: US (occurrence: US)
  Receive Date: 20150604
  Receipt Date: 20200526
  Transmission Date: 20200713
  Serious: Yes (Other)
  Sender: FDA-Public Use
  Company Number: US-SA-2014SA159746

PATIENT
  Age: 71 Year
  Sex: Male

DRUGS (13)
  1. LANTUS [Suspect]
     Active Substance: INSULIN GLARGINE
     Indication: DIABETES MELLITUS INADEQUATE CONTROL
     Dosage: 17 IU
     Route: 065
  2. LANTUS [Suspect]
     Active Substance: INSULIN GLARGINE
     Dosage: UNK UNK,QD
     Route: 065
  3. NOVOLOG [Concomitant]
     Active Substance: INSULIN ASPART
     Dosage: UNK
     Route: 065
  4. APIDRA SOLOSTAR [Concomitant]
     Active Substance: INSULIN GLULISINE
     Indication: DIABETES MELLITUS INADEQUATE CONTROL
     Dosage: 20 IU,UNK
     Route: 065
  5. HUMALOG [Concomitant]
     Active Substance: INSULIN LISPRO
     Dosage: UNK
     Route: 065
  6. ELIGARD [Concomitant]
     Active Substance: LEUPROLIDE ACETATE
     Dosage: 15 MG,UNK
     Route: 065
  7. ESTRADERM [Concomitant]
     Active Substance: ESTRADIOL
     Dosage: UNK
     Route: 062
  8. CORTISONE [Concomitant]
     Active Substance: CORTISONE
     Dosage: UNK
     Route: 065
  9. LANTUS [Suspect]
     Active Substance: INSULIN GLARGINE
     Dosage: 14 IU
     Route: 065
  10. LANTUS [Suspect]
     Active Substance: INSULIN GLARGINE
     Dosage: 8 UNK
  11. APIDRA SOLOSTAR [Concomitant]
     Active Substance: INSULIN GLULISINE
     Dosage: UNK UNK,QID
     Route: 065
  12. NPH INSULIN [Concomitant]
     Active Substance: INSULIN BEEF
     Dosage: UNK
     Route: 065
  13. LUPRON [Concomitant]
     Active Substance: LEUPROLIDE ACETATE
     Dosage: UNK
     Route: 065

REACTIONS (13)
  - Blood testosterone increased [Not Recovered/Not Resolved]
  - Chills [Unknown]
  - Injection site atrophy [Unknown]
  - Seizure [Unknown]
  - Hyperhidrosis [Unknown]
  - Weight increased [Not Recovered/Not Resolved]
  - Pollakiuria [Unknown]
  - Blood cholesterol increased [Unknown]
  - Libido decreased [Unknown]
  - Hyperkeratosis [Unknown]
  - Hot flush [Not Recovered/Not Resolved]
  - Blood glucose abnormal [Not Recovered/Not Resolved]
  - Blood glucose increased [Unknown]

NARRATIVE: CASE EVENT DATE: 201505
